FAERS Safety Report 25823727 (Version 1)
Quarter: 2025Q3

REPORT INFORMATION
  Report Type: Spontaneous
  Country: CN (occurrence: CN)
  Receive Date: 20250919
  Receipt Date: 20250919
  Transmission Date: 20251020
  Serious: Yes (Other)
  Sender: ABBVIE
  Company Number: CN-PFIZER INC-PV202500110793

PATIENT
  Age: 58 Year
  Sex: Male
  Weight: 55 kg

DRUGS (2)
  1. AVIBACTAM SODIUM [Suspect]
     Active Substance: AVIBACTAM SODIUM
     Indication: Pneumonia
     Route: 041
     Dates: start: 20250904, end: 20250911
  2. SODIUM CHLORIDE [Concomitant]
     Active Substance: SODIUM CHLORIDE
     Indication: Vehicle solution use
     Route: 041
     Dates: start: 20250904, end: 20250911

REACTIONS (2)
  - Hepatic function abnormal [Recovering/Resolving]
  - Transaminases increased [Recovering/Resolving]

NARRATIVE: CASE EVENT DATE: 20250908
